FAERS Safety Report 16981710 (Version 1)
Quarter: 2019Q4

REPORT INFORMATION
  Report Type: Spontaneous
  Country: US (occurrence: US)
  Receive Date: 20191101
  Receipt Date: 20191101
  Transmission Date: 20200122
  Serious: No
  Sender: FDA-Public Use
  Company Number: US-CIPLA LTD.-2019US02064

PATIENT

DRUGS (3)
  1. GABAPENTIN. [Suspect]
     Active Substance: GABAPENTIN
     Indication: HYPOAESTHESIA
     Dosage: 300 MILLIGRAM, TID
     Route: 048
     Dates: start: 201812
  2. GABAPENTIN. [Suspect]
     Active Substance: GABAPENTIN
     Dosage: 300 MILLIGRAM, QID (4 TIMES DAILY)
     Route: 048
     Dates: end: 201903
  3. TRAMADOL. [Concomitant]
     Active Substance: TRAMADOL
     Indication: HYPOAESTHESIA
     Dosage: 50 MILLIGRAM, TABLET, BID
     Route: 048
     Dates: start: 2018

REACTIONS (3)
  - Off label use [Unknown]
  - Condition aggravated [Not Recovered/Not Resolved]
  - Drug ineffective for unapproved indication [Unknown]

NARRATIVE: CASE EVENT DATE: 201812
